FAERS Safety Report 24897207 (Version 4)
Quarter: 2025Q1

REPORT INFORMATION
  Report Type: Report from Study
  Country: RO (occurrence: RO)
  Receive Date: 20250128
  Receipt Date: 20250219
  Transmission Date: 20250409
  Serious: Yes (Death, Hospitalization, Other)
  Sender: TAKEDA
  Company Number: RO-TAKEDA-2025TUS008867

PATIENT
  Age: 66 Year
  Sex: Male

DRUGS (12)
  1. HUMAN IMMUNOGLOBULIN G\HYALURONIDASE RECOMBINANT HUMAN [Suspect]
     Active Substance: HUMAN IMMUNOGLOBULIN G\HYALURONIDASE (HUMAN RECOMBINANT)
     Indication: Plasma cell myeloma
     Dosage: 25 GRAM, Q3WEEKS
     Dates: start: 20241218
  2. HUMAN IMMUNOGLOBULIN G\HYALURONIDASE RECOMBINANT HUMAN [Suspect]
     Active Substance: HUMAN IMMUNOGLOBULIN G\HYALURONIDASE (HUMAN RECOMBINANT)
     Indication: Secondary immunodeficiency
  3. ACYCLOVIR [Concomitant]
     Active Substance: ACYCLOVIR
     Indication: Anti-infective therapy
     Dosage: UNK UNK, BID
     Dates: start: 20230418
  4. Acifol [Concomitant]
     Indication: Anti-infective therapy
  5. Milgamma [Concomitant]
     Indication: Hypovitaminosis
  6. ENTECAVIR [Concomitant]
     Active Substance: ENTECAVIR
     Indication: Anti-infective therapy
     Dosage: UNK UNK, QOD
     Dates: start: 20230418
  7. .ALPHA.-LIPOIC ACID [Concomitant]
     Active Substance: .ALPHA.-LIPOIC ACID
     Indication: Neuropathy peripheral
     Dosage: UNK UNK, QD
     Dates: start: 20231201
  8. Milgamma n [Concomitant]
     Indication: Neuropathy peripheral
     Dosage: UNK UNK, BID
     Dates: start: 20250113
  9. ROSUVASTATIN [Concomitant]
     Active Substance: ROSUVASTATIN
     Indication: Hypercholesterolaemia
     Dosage: UNK UNK, QD
     Dates: start: 20211201
  10. GABAPENTIN [Concomitant]
     Active Substance: GABAPENTIN
     Indication: Neuropathy peripheral
     Dosage: UNK UNK, BID
     Dates: start: 20211201
  11. PIPERACILLIN SODIUM\TAZOBACTAM SODIUM [Concomitant]
     Active Substance: PIPERACILLIN SODIUM\TAZOBACTAM SODIUM
     Indication: Anti-infective therapy
     Dosage: UNK UNK, QID
     Dates: start: 20250122, end: 20250125
  12. LEVOFLOXACIN [Concomitant]
     Active Substance: LEVOFLOXACIN
     Indication: Anti-infective therapy
     Dosage: UNK UNK, BID
     Dates: start: 20250122, end: 20250125

REACTIONS (2)
  - Septic shock [Fatal]
  - Respiratory tract infection [Fatal]

NARRATIVE: CASE EVENT DATE: 20250122
